FAERS Safety Report 6288802-0 (Version None)
Quarter: 2009Q3

REPORT INFORMATION
  Report Type: 
  Country: None (occurrence: None)
  Receive Date: 20090729
  Receipt Date: 20090714
  Transmission Date: 20100115
  Serious: Yes (Other)
  Sender: FDA-Public Use
  Company Number: BR-PFIZER INC-2009241824

PATIENT

DRUGS (1)
  1. DOSTINEX [Suspect]
     Indication: BLOOD PROLACTIN INCREASED
     Route: 048

REACTIONS (1)
  - BLOOD PROLACTIN INCREASED [None]
